FAERS Safety Report 16215355 (Version 1)
Quarter: 2019Q2

REPORT INFORMATION
  Report Type: Spontaneous
  Country: US (occurrence: US)
  Receive Date: 20190418
  Receipt Date: 20190418
  Transmission Date: 20190711
  Serious: Yes (Hospitalization, Other)
  Sender: FDA-Public Use
  Company Number: None

PATIENT
  Age: 63 Year
  Sex: Male
  Weight: 83.2 kg

DRUGS (4)
  1. IBUPROFEN 800 MG PO TID [Concomitant]
     Dates: start: 20140123
  2. OXYCODONE 5 MG 1-2 TABS PO Q6H PRN PAIN MDD: 4/D [Concomitant]
     Dates: start: 20151208
  3. XELJANZ XR [Suspect]
     Active Substance: TOFACITINIB CITRATE
     Indication: RHEUMATOID ARTHRITIS
     Route: 048
     Dates: start: 20170416, end: 20190408
  4. OMEPRAZOLE 20 MG PO QD [Concomitant]
     Dates: start: 20170202

REACTIONS (2)
  - Diverticulitis [None]
  - Diverticular perforation [None]

NARRATIVE: CASE EVENT DATE: 20190408
